FAERS Safety Report 5605584-3 (Version None)
Quarter: 2008Q1

REPORT INFORMATION
  Report Type: 
  Country: None (occurrence: None)
  Receive Date: 20080124
  Receipt Date: 20080111
  Transmission Date: 20080703
  Serious: Yes (Hospitalization)
  Sender: FDA-Public Use
  Company Number: SOLAGE0800001

PATIENT
  Age: 31 Year
  Sex: Male

DRUGS (3)
  1. SOLAGE [Suspect]
  2. ALL-TRANSRETINOIC ACID (ATRA) (TRETINOIN) [Suspect]
     Indication: ACUTE PROMYELOCYTIC LEUKAEMIA
     Dosage: 45 MG/M2, QD
  3. IDARUBICIN HCL [Concomitant]

REACTIONS (10)
  - C-REACTIVE PROTEIN INCREASED [None]
  - ESCHAR [None]
  - HAEMOGLOBIN DECREASED [None]
  - INFLAMMATION [None]
  - LETHARGY [None]
  - PAIN [None]
  - PLATELET COUNT DECREASED [None]
  - SCROTAL ULCER [None]
  - STAPHYLOCOCCAL INFECTION [None]
  - SUPERINFECTION [None]
